FAERS Safety Report 7940004-5 (Version None)
Quarter: 2011Q4

REPORT INFORMATION
  Report Type: 
  Country: None (occurrence: None)
  Receive Date: 20111125
  Receipt Date: 20111123
  Transmission Date: 20120403
  Serious: Yes (Other)
  Sender: FDA-Public Use
  Company Number: US-PFIZER INC-2011287204

PATIENT
  Age: 17 Year
  Sex: Female

DRUGS (1)
  1. GEODON [Suspect]
     Dosage: UNK
     Dates: start: 20110901, end: 20111001

REACTIONS (1)
  - TARDIVE DYSKINESIA [None]
